FAERS Safety Report 6371673-1 (Version None)
Quarter: 2009Q3

REPORT INFORMATION
  Report Type: 
  Country: None (occurrence: None)
  Receive Date: 20090923
  Receipt Date: 20080530
  Transmission Date: 20100115
  Serious: No
  Sender: FDA-Public Use
  Company Number: US-ASTRAZENECA-2008UW02424

PATIENT
  Age: 48 Year
  Sex: Male
  Weight: 101.2 kg

DRUGS (26)
  1. SEROQUEL [Suspect]
     Indication: DEPRESSION
     Dosage: VARIOUS (INCLUDING BUT NOT LIMITED TO 100 MG)
     Route: 048
     Dates: start: 20040201, end: 20070101
  2. SEROQUEL [Suspect]
     Indication: INSOMNIA
     Dosage: VARIOUS (INCLUDING BUT NOT LIMITED TO 100 MG)
     Route: 048
     Dates: start: 20040201, end: 20070101
  3. SEROQUEL [Suspect]
     Dosage: 100 MG - 200 MG
     Route: 048
     Dates: start: 20060217
  4. SEROQUEL [Suspect]
     Dosage: 100 MG - 200 MG
     Route: 048
     Dates: start: 20060217
  5. ABILIFY [Concomitant]
     Dates: start: 19800101
  6. ABILIFY [Concomitant]
     Dosage: 10 MG - 15 MG
     Route: 048
  7. HALDOL [Concomitant]
     Dates: start: 19800101
  8. THORAZINE [Concomitant]
     Dates: start: 19800101
  9. PAXIL [Concomitant]
     Dates: start: 20040101
  10. DEPAKOTE [Concomitant]
     Route: 048
  11. DOXEPIN HCL [Concomitant]
     Route: 048
  12. LEXAPRO [Concomitant]
     Route: 048
  13. HYDROCODONE BITARTRATE AND ACETAMINOPHEN [Concomitant]
     Dosage: 5 MG/ 500 MG
     Route: 048
  14. CIPROFLAXACIN [Concomitant]
     Route: 048
  15. TRAZODONE [Concomitant]
     Route: 048
  16. DIOVAN [Concomitant]
     Route: 048
  17. CYCLOBENZAPRINE [Concomitant]
     Route: 065
  18. AMBIEN [Concomitant]
     Route: 048
  19. NORVASC [Concomitant]
     Route: 048
  20. LUNESTA [Concomitant]
     Dosage: 2 MG - 3 MG
     Route: 048
  21. GABITRIL [Concomitant]
     Route: 048
  22. LISINOPRIL [Concomitant]
     Route: 048
  23. MOBIC [Concomitant]
     Route: 048
  24. TEMAZEPAM [Concomitant]
     Route: 048
  25. IBUPROFEN [Concomitant]
     Route: 048
  26. CAMPRAL [Concomitant]
     Route: 048

REACTIONS (10)
  - ABDOMINAL HERNIA [None]
  - ANXIETY [None]
  - DIABETES MELLITUS [None]
  - DIARRHOEA [None]
  - HEPATITIS B [None]
  - HEPATITIS C [None]
  - HERNIA [None]
  - IRRITABILITY [None]
  - LIVER DISORDER [None]
  - SCHIZOPHRENIA, PARANOID TYPE [None]
